FAERS Safety Report 14503682 (Version 3)
Quarter: 2018Q1

REPORT INFORMATION
  Report Type: Spontaneous
  Country: JP (occurrence: JP)
  Receive Date: 20180208
  Receipt Date: 20180311
  Transmission Date: 20180509
  Serious: Yes (Other)
  Sender: FDA-Public Use
  Company Number: PHHY2018JP021084

PATIENT
  Age: 67 Year
  Sex: Male

DRUGS (1)
  1. SLONNON [Suspect]
     Active Substance: ARGATROBAN
     Indication: CEREBRAL ARTERY EMBOLISM
     Dosage: UNK
     Route: 065

REACTIONS (2)
  - Melaena [Unknown]
  - Anaemia [Unknown]
